FAERS Safety Report 7888603-3 (Version None)
Quarter: 2011Q4

REPORT INFORMATION
  Report Type: 
  Country: None (occurrence: None)
  Receive Date: 20111103
  Receipt Date: 20111024
  Transmission Date: 20120403
  Serious: Yes (Other)
  Sender: FDA-Public Use
  Company Number: IT-ROCHE-1007367

PATIENT

DRUGS (2)
  1. PEGINTERFERON ALFA-2A [Suspect]
     Indication: HEPATITIS C
     Route: 058
  2. COPEGUS [Suspect]
     Indication: HEPATITIS C
     Route: 048

REACTIONS (6)
  - HYPERTHYROIDISM [None]
  - ANAEMIA [None]
  - DEPRESSION [None]
  - HYPOTHYROIDISM [None]
  - ACUTE PSYCHOSIS [None]
  - COELIAC DISEASE [None]
